FAERS Safety Report 23042439 (Version 1)
Quarter: 2023Q4

REPORT INFORMATION
  Report Type: Spontaneous
  Country: US (occurrence: US)
  Receive Date: 20231008
  Receipt Date: 20231008
  Transmission Date: 20240109
  Serious: No
  Sender: FDA-Public Use
  Company Number: US-ABBVIE-5440036

PATIENT
  Sex: Male

DRUGS (1)
  1. IMBRUVICA [Suspect]
     Active Substance: IBRUTINIB
     Indication: Product used for unknown indication
     Dosage: FORM STRENGTH: 140MG TAB, TAKE 3 TABLETS BY MOUTH ONCE DAILY AS DIRECTED. TABLET SHOULD BE TAKEN ...
     Route: 048

REACTIONS (1)
  - Diarrhoea [Recovered/Resolved]
